FAERS Safety Report 6622754-6 (Version None)
Quarter: 2010Q1

REPORT INFORMATION
  Report Type: 
  Country: None (occurrence: None)
  Receive Date: 20100304
  Receipt Date: 20100222
  Transmission Date: 20100710
  Serious: Yes (Hospitalization)
  Sender: FDA-Public Use
  Company Number: 8048186

PATIENT
  Sex: Male
  Weight: 70 kg

DRUGS (6)
  1. CERTOLIZUMAB PEGOL (CDP870) [Suspect]
     Indication: RHEUMATOID ARTHRITIS
     Dosage: 400 MG 1X/2 WEEKS SUBCUTANEOUS; 400 MG 1X/2 WEEKS SUBCUTANEOUS
     Route: 058
     Dates: start: 20050804, end: 20090603
  2. CERTOLIZUMAB PEGOL (CDP870) [Suspect]
     Indication: RHEUMATOID ARTHRITIS
     Dosage: 400 MG 1X/2 WEEKS SUBCUTANEOUS; 400 MG 1X/2 WEEKS SUBCUTANEOUS
     Route: 058
     Dates: start: 20090729
  3. METHOTREXATE [Concomitant]
  4. METHYLPREDNISOLONE [Concomitant]
  5. ACIDUM FOLICUM [Concomitant]
  6. KALIUM CHLORATUM /00031402/ [Concomitant]

REACTIONS (6)
  - ABSCESS SOFT TISSUE [None]
  - ARTHRITIS [None]
  - GROIN ABSCESS [None]
  - LIMB TRAUMATIC AMPUTATION [None]
  - SALMONELLOSIS [None]
  - SEPSIS [None]
